FAERS Safety Report 6341185-X (Version None)
Quarter: 2009Q3

REPORT INFORMATION
  Report Type: 
  Country: None (occurrence: None)
  Receive Date: 20090904
  Receipt Date: 20090505
  Transmission Date: 20100115
  Serious: No
  Sender: FDA-Public Use
  Company Number: A0777108A

PATIENT
  Age: 8 Year
  Sex: Male

DRUGS (3)
  1. ROPINIROLE HYDROCHLORIDE [Suspect]
     Route: 048
  2. TRILEPTAL [Concomitant]
     Dosage: 150MG TWICE PER DAY
     Dates: start: 20090401
  3. IMIPRAMINE [Concomitant]
     Dosage: 50MG AT NIGHT
     Dates: start: 20090401

REACTIONS (1)
  - DRUG DISPENSING ERROR [None]
